FAERS Safety Report 11507821 (Version 1)
Quarter: 2015Q3

REPORT INFORMATION
  Report Type: Spontaneous
  Country: US (occurrence: US)
  Receive Date: 20150903
  Receipt Date: 20150903
  Transmission Date: 20151125
  Serious: No
  Sender: FDA-Public Use
  Company Number: US-ELI_LILLY_AND_COMPANY-US200910002076

PATIENT
  Sex: Female

DRUGS (5)
  1. FORTEO [Concomitant]
     Active Substance: TERIPARATIDE
  2. HUMALOG [Suspect]
     Active Substance: INSULIN LISPRO
  3. HUMALOG [Suspect]
     Active Substance: INSULIN LISPRO
  4. METFORMIN [Concomitant]
     Active Substance: METFORMIN HYDROCHLORIDE
  5. LANTUS [Concomitant]
     Active Substance: INSULIN GLARGINE

REACTIONS (8)
  - Drug dose omission [Unknown]
  - Intentional device misuse [Unknown]
  - Decreased appetite [Unknown]
  - Weight decreased [Unknown]
  - Insomnia [Unknown]
  - Wrong technique in product usage process [Unknown]
  - Stress [Unknown]
  - Glycosylated haemoglobin increased [Unknown]

NARRATIVE: CASE EVENT DATE: 2009
